FAERS Safety Report 5343952-8 (Version None)
Quarter: 2007Q2

REPORT INFORMATION
  Report Type: 
  Country: None (occurrence: None)
  Receive Date: 20070531
  Receipt Date: 20070531
  Transmission Date: 20071010
  Serious: Yes (Other)
  Sender: FDA-Public Use
  Company Number: None

PATIENT
  Age: 43 Year
  Sex: Female
  Weight: 74.8435 kg

DRUGS (2)
  1. ZELNORM [Suspect]
     Indication: CONSTIPATION
     Dosage: 1 TABLET 2 TIMES PER DAY PO
     Route: 048
     Dates: start: 20070115, end: 20070415
  2. ZELNORM [Suspect]
     Indication: GASTROINTESTINAL MOTILITY DISORDER
     Dosage: 1 TABLET 2 TIMES PER DAY PO
     Route: 048
     Dates: start: 20070115, end: 20070415

REACTIONS (4)
  - CONSTIPATION [None]
  - HYPERSENSITIVITY [None]
  - OEDEMA [None]
  - PHARMACEUTICAL PRODUCT COMPLAINT [None]
